FAERS Safety Report 9258358 (Version 1)
Quarter: 2013Q2

REPORT INFORMATION
  Report Type: Report from Study
  Country: JP (occurrence: JP)
  Receive Date: 20130426
  Receipt Date: 20130426
  Transmission Date: 20140414
  Serious: Yes (Hospitalization)
  Sender: FDA-Public Use
  Company Number: JP-PFIZER INC-2010165202

PATIENT
  Age: 78 Year
  Sex: Female
  Weight: 36.9 kg

DRUGS (7)
  1. AXITINIB [Suspect]
     Indication: METASTATIC RENAL CELL CARCINOMA
     Dosage: 7 MG, 2X/DAY
     Route: 048
     Dates: start: 20100715, end: 20101202
  2. FERROMIA [Concomitant]
     Indication: IRON DEFICIENCY ANAEMIA
     Dosage: 50 MG, 2X/DAY
     Route: 048
     Dates: start: 20100603, end: 20101203
  3. CINAL [Concomitant]
     Indication: IRON DEFICIENCY ANAEMIA
     Dosage: 200 MG, 2X/DAY
     Route: 048
     Dates: start: 20100603, end: 20101203
  4. AMLODIPINE [Concomitant]
     Indication: HYPERTENSION
     Dosage: 5 MG, 1X/DAY
     Route: 048
     Dates: start: 20101006, end: 20101203
  5. AMLODIPINE [Concomitant]
     Dosage: 5 MG, 1X/DAY
     Route: 048
     Dates: start: 20101208
  6. PURSENNID [Concomitant]
     Indication: CONSTIPATION
     Dosage: 24 MG (12 MG X 2 TABLETS), AS NEEDED
     Route: 048
     Dates: start: 20081030, end: 20101203
  7. COCARL [Concomitant]
     Indication: PAIN
     Dosage: 400 MG (200 MG X2 TABLETS), AS NEEDED
     Route: 048
     Dates: start: 20081030, end: 20101203

REACTIONS (1)
  - Convulsion [Recovered/Resolved]
